FAERS Safety Report 8251623-3 (Version None)
Quarter: 2012Q2

REPORT INFORMATION
  Report Type: 
  Country: None (occurrence: None)
  Receive Date: 20120402
  Receipt Date: 20120321
  Transmission Date: 20120825
  Serious: Yes (Hospitalization)
  Sender: FDA-Public Use
  Company Number: US-ELI_LILLY_AND_COMPANY-US201201002307

PATIENT
  Sex: Male

DRUGS (3)
  1. HUMALOG [Suspect]
     Indication: TYPE 1 DIABETES MELLITUS
     Dosage: UNK, OTHER
     Route: 058
     Dates: start: 20080101
  2. HUMALOG [Suspect]
     Dosage: UNK, OTHER
     Dates: start: 20080101
  3. HUMALOG [Suspect]
     Dosage: UNK, OTHER
     Route: 058
     Dates: start: 20080101

REACTIONS (3)
  - PANCREATITIS CHRONIC [None]
  - DRUG EFFECT DECREASED [None]
  - BLOOD GLUCOSE INCREASED [None]
